FAERS Safety Report 9791314 (Version 2)
Quarter: 2014Q1

REPORT INFORMATION
  Report Type: Report from Study
  Country: FR (occurrence: FR)
  Receive Date: 20140101
  Receipt Date: 20140101
  Transmission Date: 20141002
  Serious: Yes (Other)
  Sender: FDA-Public Use
  Company Number: FR-ROCHE-670296

PATIENT
  Sex: 0

DRUGS (1)
  1. ENFUVIRTIDE [Suspect]
     Indication: HIV INFECTION
     Route: 058

REACTIONS (5)
  - Gastrointestinal disorder [Unknown]
  - Coronary artery disease [Unknown]
  - Mental disorder [Unknown]
  - Respiratory disorder [Unknown]
  - Hypokalaemia [Unknown]
